FAERS Safety Report 19884669 (Version 1)
Quarter: 2021Q3

REPORT INFORMATION
  Report Type: Spontaneous
  Country: CA (occurrence: CA)
  Receive Date: 20210927
  Receipt Date: 20210927
  Transmission Date: 20211014
  Serious: Yes (Hospitalization)
  Sender: FDA-Public Use
  Company Number: CA-CELLTRION INC.-2021CA008198

PATIENT

DRUGS (20)
  1. INFLECTRA [Suspect]
     Active Substance: INFLIXIMAB-DYYB
     Indication: COLITIS ULCERATIVE
     Dosage: 400 MG, INDUCTION DOSES AT WEEK 0, 1, 2, 4 AND 6, THEN EVERY 8 WEEKS
     Route: 042
     Dates: start: 20210515, end: 20210821
  2. CALCIUM [Concomitant]
     Active Substance: CALCIUM
     Dosage: UNK, UNKNOWN DOSE
  3. INFLECTRA [Suspect]
     Active Substance: INFLIXIMAB-DYYB
     Dosage: 400 MG,  0, 1, 2, 4, 6, THEN EVERY 8 WEEKS
     Route: 042
     Dates: start: 20210521
  4. INFLECTRA [Suspect]
     Active Substance: INFLIXIMAB-DYYB
     Dosage: 400 MG,  0, 1, 2, 4, 6, THEN EVERY 8 WEEKS
     Route: 042
     Dates: start: 20210609
  5. INFLECTRA [Suspect]
     Active Substance: INFLIXIMAB-DYYB
     Dosage: 400 MG, 0, 1, 2, 4, 6, THEN EVERY 8 WEEKS
     Route: 042
     Dates: start: 20210626
  6. MEZAVANT [Concomitant]
     Active Substance: MESALAMINE
     Dosage: 4.8 MG, DAILY
  7. MEZAVANT [Concomitant]
     Active Substance: MESALAMINE
     Dosage: 4800 UG, DAILY
     Route: 065
  8. OMEGA 3 FISH OILS [Concomitant]
     Active Substance: OMEGA-3 FATTY ACIDS
     Dosage: UNK, UNKNOWN DOSE
  9. PANTOPRAZOLE [Concomitant]
     Active Substance: PANTOPRAZOLE
     Dosage: UNK, UNKNOWN DOSE
  10. PREDNISONE. [Concomitant]
     Active Substance: PREDNISONE
     Dosage: 40 MG
     Route: 048
  11. VITAMIN D NOS [Concomitant]
     Active Substance: VITAMIN D NOS
     Dosage: UNK, UNKNOWN DOSE
  12. FOLIC ACID. [Concomitant]
     Active Substance: FOLIC ACID
     Dosage: 1 MG 6 DAYS PER WEEK
  13. PREDNISONE. [Concomitant]
     Active Substance: PREDNISONE
     Dosage: 30 MG TAPERING
     Route: 048
     Dates: end: 20210616
  14. METHOTREXATE. [Concomitant]
     Active Substance: METHOTREXATE
     Dosage: 1 DF, UNKNOWN DOSE
     Dates: start: 202105
  15. INFLECTRA [Suspect]
     Active Substance: INFLIXIMAB-DYYB
     Dosage: 400 MG,  0, 1, 2, 4, 6, THEN EVERY 8 WEEKS
     Route: 042
     Dates: start: 20210528
  16. INFLECTRA [Suspect]
     Active Substance: INFLIXIMAB-DYYB
     Dosage: 400 MG, EVERY 4 WEEKS  RESCUE DOSE WAS GIVEN IN THE HOSPITAL PRIOR TO THE INFUSION ON 16SEP2021
     Route: 042
     Dates: start: 20210916
  17. PROBIOTICS NOS [Concomitant]
     Active Substance: PROBIOTICS NOS
     Dosage: UNK
  18. INFLECTRA [Suspect]
     Active Substance: INFLIXIMAB-DYYB
     Dosage: 400 MG, 0, 1, 2, 4, 6, THEN EVERY 8 WEEKS
     Route: 042
     Dates: start: 20210821
  19. PREDNISONE. [Concomitant]
     Active Substance: PREDNISONE
     Dosage: 30 MG TAPERING
     Route: 048
  20. SYNTHROID [Concomitant]
     Active Substance: LEVOTHYROXINE SODIUM
     Indication: HYPOTHYROIDISM
     Dosage: 1 DF (DOSAGE UNKNOWN)

REACTIONS (13)
  - Intentional product use issue [Unknown]
  - Colitis ulcerative [Unknown]
  - Therapeutic response decreased [Unknown]
  - Off label use [Unknown]
  - Paraesthesia [Unknown]
  - Pollakiuria [Unknown]
  - Arthralgia [Unknown]
  - Swelling [Not Recovered/Not Resolved]
  - Inappropriate schedule of product administration [Unknown]
  - Condition aggravated [Not Recovered/Not Resolved]
  - Weight decreased [Unknown]
  - Off label use [Unknown]
  - Musculoskeletal discomfort [Unknown]

NARRATIVE: CASE EVENT DATE: 2021
